FAERS Safety Report 21866767 (Version 1)
Quarter: 2023Q1

REPORT INFORMATION
  Report Type: Spontaneous
  Country: GA (occurrence: GA)
  Receive Date: 20230116
  Receipt Date: 20230116
  Transmission Date: 20230417
  Serious: Yes (Death, Life-Threatening, Hospitalization, Other)
  Sender: FDA-Public Use
  Company Number: GA-MLMSERVICE-20221230-4017609-1

PATIENT
  Age: 60 Year
  Sex: Male
  Weight: 67 kg

DRUGS (2)
  1. MYCOPHENOLATE MOFETIL [Suspect]
     Active Substance: MYCOPHENOLATE MOFETIL
     Indication: Immunosuppressant drug therapy
     Dates: start: 1991
  2. CYCLOSPORINE [Suspect]
     Active Substance: CYCLOSPORINE
     Indication: Immunosuppressant drug therapy
     Dates: start: 1991

REACTIONS (5)
  - COVID-19 pneumonia [Fatal]
  - Renal failure [Fatal]
  - Acute respiratory failure [Fatal]
  - Cardiac failure congestive [Fatal]
  - Acute respiratory distress syndrome [Fatal]

NARRATIVE: CASE EVENT DATE: 20191125
